FAERS Safety Report 8055861 (Version 14)
Quarter: 2012Q4

REPORT INFORMATION
  Report Type: 
  Country: US (occurrence: US)
  Receive Date: 20110726
  Receipt Date: 20121224
  Transmission Date: 20130627
  Serious: Yes (Hospitalization, Disabling, Other)
  Sender: FDA-Public Use
  Company Number: US-009507513-1107USA03286

PATIENT

DRUGS (12)
  1. FOSAMAX [Suspect]
     Indication: OSTEOPOROSIS
     Dosage: 10 mg, qd
     Route: 048
     Dates: start: 1996
  2. FOSAMAX [Suspect]
     Dosage: 70 mg, qw
     Route: 048
  3. FOSAMAX [Suspect]
     Dosage: 10 mg, UNK
     Route: 048
     Dates: start: 20051116, end: 20060210
  4. FOSAMAX PLUS D [Suspect]
     Dosage: 70 mg, UNK
     Route: 048
     Dates: start: 20060410, end: 20070504
  5. CALCIUM (UNSPECIFIED) (+) VITAMIN D (UNSPECIFIED) [Concomitant]
     Dosage: 500-1400 mg, UNK
     Route: 048
     Dates: start: 1996
  6. CALCIUM (UNSPECIFIED) [Concomitant]
     Dosage: 1000 mg, UNK
     Route: 048
     Dates: start: 1996
  7. ASCORBIC ACID [Concomitant]
     Route: 048
  8. MK-9278 [Concomitant]
     Route: 048
  9. PREMPRO [Concomitant]
     Indication: MENOPAUSAL DISORDER
     Dosage: UNK
     Dates: end: 20020930
  10. FORTEO [Concomitant]
     Indication: OSTEOPOROSIS
     Dosage: UNK
     Dates: start: 200401, end: 200405
  11. LOPRESSOR [Concomitant]
     Indication: ESSENTIAL HYPERTENSION
  12. NORVASC [Concomitant]
     Indication: ESSENTIAL HYPERTENSION

REACTIONS (51)
  - Chronic obstructive pulmonary disease [Unknown]
  - Tooth disorder [Unknown]
  - Paraesthesia oral [Unknown]
  - Trigger finger [Unknown]
  - Oral disorder [Unknown]
  - Electrolyte imbalance [Recovered/Resolved]
  - Iodine uptake increased [Unknown]
  - Urinary tract infection [Unknown]
  - Gastric disorder [Unknown]
  - Generalised anxiety disorder [Unknown]
  - Fatigue [Unknown]
  - Ecchymosis [Unknown]
  - Lymphadenopathy [Unknown]
  - Chest pain [Unknown]
  - Osteoarthritis [Unknown]
  - Swelling [Unknown]
  - Inappropriate schedule of drug administration [Unknown]
  - Wheezing [Unknown]
  - Dry eye [Unknown]
  - Blood urine present [Unknown]
  - Glossitis [Unknown]
  - Osteoma [Unknown]
  - Diverticulitis [Unknown]
  - Spinal compression fracture [Unknown]
  - Muscular weakness [Unknown]
  - Blood parathyroid hormone decreased [Unknown]
  - Fall [Unknown]
  - Mitral valve incompetence [Unknown]
  - Blood calcium abnormal [Unknown]
  - Cardiac murmur [Unknown]
  - Pyrexia [Unknown]
  - Rash [Unknown]
  - Alopecia [Unknown]
  - Nausea [Unknown]
  - Gastrooesophageal reflux disease [Unknown]
  - Pain in extremity [Unknown]
  - Vomiting [Unknown]
  - Arthropathy [Unknown]
  - Osteoporosis [Not Recovered/Not Resolved]
  - Femur fracture [Unknown]
  - Back pain [Unknown]
  - Bone pain [Unknown]
  - Femur fracture [Unknown]
  - Vitamin D deficiency [Unknown]
  - Vitamin C deficiency [Unknown]
  - Low turnover osteopathy [Unknown]
  - Adverse event [Unknown]
  - Mitral valve prolapse [Unknown]
  - Bursitis [Unknown]
  - Osteogenesis imperfecta [Unknown]
  - Rib fracture [Unknown]
